FAERS Safety Report 12738914 (Version 1)
Quarter: 2016Q3

REPORT INFORMATION
  Report Type: Spontaneous
  Country: US (occurrence: US)
  Receive Date: 20160912
  Receipt Date: 20160912
  Transmission Date: 20161109
  Serious: No
  Sender: FDA-Public Use
  Company Number: US-PFIZER INC-2016424852

PATIENT

DRUGS (1)
  1. DIAZEPAM. [Suspect]
     Active Substance: DIAZEPAM
     Route: 042

REACTIONS (3)
  - Injection site erythema [Not Recovered/Not Resolved]
  - Injection site extravasation [Unknown]
  - Injection site inflammation [Not Recovered/Not Resolved]
